FAERS Safety Report 18572445 (Version 2)
Quarter: 2021Q1

REPORT INFORMATION
  Report Type: Spontaneous
  Country: US (occurrence: US)
  Receive Date: 20201203
  Receipt Date: 20210210
  Transmission Date: 20210419
  Serious: No
  Sender: FDA-Public Use
  Company Number: US-GLAXOSMITHKLINE-US2020233766

PATIENT
  Sex: Female

DRUGS (2)
  1. ZEJULA [Suspect]
     Active Substance: NIRAPARIB
     Indication: OVARIAN CANCER
     Dosage: UNK
     Route: 048
     Dates: end: 201909
  2. ZEJULA [Suspect]
     Active Substance: NIRAPARIB
     Dosage: 300 MG, QD
     Dates: start: 20210122

REACTIONS (7)
  - Nausea [Recovered/Resolved]
  - Stomatitis [Recovered/Resolved]
  - Laboratory test abnormal [Unknown]
  - Sleep terror [Recovered/Resolved]
  - Incorrect dose administered [Unknown]
  - Heart rate increased [Recovered/Resolved]
  - Blood pressure increased [Recovering/Resolving]
